FAERS Safety Report 5645518-9 (Version None)
Quarter: 2008Q1

REPORT INFORMATION
  Report Type: 
  Country: None (occurrence: None)
  Receive Date: 20080229
  Receipt Date: 20080225
  Transmission Date: 20080703
  Serious: Yes (Hospitalization)
  Sender: FDA-Public Use
  Company Number: FR-ASTRAZENECA-2008CG00316

PATIENT
  Age: 28347 Day
  Sex: Female

DRUGS (8)
  1. ATACAND [Suspect]
     Indication: HYPERTENSION
     Route: 048
     Dates: start: 20070501
  2. PLAVIX [Suspect]
     Indication: ISCHAEMIC CARDIOMYOPATHY
     Route: 048
     Dates: end: 20071113
  3. PANADOL [Suspect]
     Indication: PAIN
     Route: 048
     Dates: start: 20071001, end: 20070101
  4. CHONDROSULF [Suspect]
     Indication: OSTEOARTHRITIS
     Route: 048
     Dates: start: 20071013, end: 20070101
  5. KARDEGIC [Suspect]
     Indication: ISCHAEMIC CARDIOMYOPATHY
     Route: 048
  6. HYPERIUM [Suspect]
     Indication: HYPERTENSION
     Route: 048
  7. SECTRAL [Suspect]
     Indication: HYPERTENSION
     Route: 048
     Dates: start: 20070501
  8. LEVOTHYROX [Suspect]
     Indication: HYPOTHYROIDISM
     Route: 048

REACTIONS (1)
  - VASCULAR PURPURA [None]
